FAERS Safety Report 6687511-3 (Version None)
Quarter: 2010Q2

REPORT INFORMATION
  Report Type: 
  Country: None (occurrence: None)
  Receive Date: 20100419
  Receipt Date: 20090511
  Transmission Date: 20101027
  Serious: No
  Sender: FDA-Public Use
  Company Number: US-ABBOTT-09P-163-0573015-00

PATIENT

DRUGS (1)
  1. LUPRON DEPOT-PED [Suspect]
     Indication: DRUG USE FOR UNKNOWN INDICATION

REACTIONS (3)
  - INJECTION SITE REACTION [None]
  - LIMB DISCOMFORT [None]
  - WRONG DRUG ADMINISTERED [None]
